FAERS Safety Report 25766572 (Version 1)
Quarter: 2025Q3

REPORT INFORMATION
  Report Type: Spontaneous
  Country: US (occurrence: None)
  Receive Date: 20250905
  Receipt Date: 20250905
  Transmission Date: 20251021
  Serious: Yes (Hospitalization)
  Sender: FDA-CTU
  Company Number: None

PATIENT
  Age: 77 Year
  Sex: Male
  Weight: 64.7 kg

DRUGS (1)
  1. TAXOTERE [Suspect]
     Active Substance: DOCETAXEL
     Dates: start: 20140317

REACTIONS (6)
  - Neck pain [None]
  - Dysphonia [None]
  - Hypophagia [None]
  - Dysphagia [None]
  - Food intolerance [None]
  - Procedural complication [None]

NARRATIVE: CASE EVENT DATE: 20250820
